FAERS Safety Report 23861522 (Version 2)
Quarter: 2024Q2

REPORT INFORMATION
  Report Type: Report from Study
  Country: US (occurrence: US)
  Receive Date: 20240516
  Receipt Date: 20240522
  Transmission Date: 20240716
  Serious: Yes (Disabling, Other)
  Sender: FDA-Public Use
  Company Number: US-GILEAD-2024-0672728

PATIENT
  Sex: Male

DRUGS (1)
  1. COBICISTAT\ELVITEGRAVIR\EMTRICITABINE\TENOFOVIR [Suspect]
     Active Substance: COBICISTAT\ELVITEGRAVIR\EMTRICITABINE\TENOFOVIR
     Indication: HIV infection
     Dosage: 510 MG, QD
     Route: 048

REACTIONS (2)
  - Disability [Not Recovered/Not Resolved]
  - Product dose omission issue [Not Recovered/Not Resolved]

NARRATIVE: CASE EVENT DATE: 20150101
